FAERS Safety Report 10472965 (Version 1)
Quarter: 2014Q3

REPORT INFORMATION
  Report Type: Spontaneous
  Country: US (occurrence: US)
  Receive Date: 20140924
  Receipt Date: 20140924
  Transmission Date: 20150326
  Serious: No
  Sender: FDA-Public Use
  Company Number: US-PFIZER INC-2014258760

PATIENT
  Sex: Male

DRUGS (1)
  1. LIPITOR [Suspect]
     Active Substance: ATORVASTATIN CALCIUM
     Dosage: UNK
     Dates: start: 201404, end: 2014

REACTIONS (4)
  - Arthralgia [Unknown]
  - Hepatic enzyme increased [Unknown]
  - Pain [Unknown]
  - Groin pain [Unknown]

NARRATIVE: CASE EVENT DATE: 2014
